FAERS Safety Report 4437452-7 (Version None)
Quarter: 2004Q3

REPORT INFORMATION
  Report Type: 
  Country: None (occurrence: None)
  Receive Date: 20040827
  Receipt Date: 20040816
  Transmission Date: 20050211
  Serious: Yes (Life-Threatening, Hospitalization, Other)
  Sender: FDA-Public Use
  Company Number: HQWYE876213MAY04

PATIENT
  Age: 18 Month
  Sex: Male

DRUGS (7)
  1. CHILDREN'S ADVIL [Suspect]
     Indication: PYREXIA
     Dosage: ORAL
     Route: 048
     Dates: start: 20040214, end: 20040216
  2. MAXILASE (AMYLASE) [Suspect]
     Dosage: ORAL
     Route: 048
     Dates: start: 20040212, end: 20040214
  3. CEFPODOXIME PROXETIL [Suspect]
     Dosage: ORAL
     Route: 048
     Dates: start: 20040216, end: 20040216
  4. PANFUREX (NIFUROXAZIDE) [Suspect]
     Dosage: ORAL
     Route: 048
     Dates: start: 20040214, end: 20040216
  5. TIXOCORTOL PIVALATE [Suspect]
     Dosage: NASAL
     Route: 045
     Dates: start: 20040212, end: 20040214
  6. PRIMPERAN TAB [Suspect]
     Dosage: ORAL
     Route: 048
     Dates: start: 20040214, end: 20040216
  7. ACETAMINOPHEN [Concomitant]

REACTIONS (18)
  - BLOOD IMMUNOGLOBULIN G INCREASED [None]
  - CARDIOMEGALY [None]
  - CHEST X-RAY ABNORMAL [None]
  - COOMBS DIRECT TEST POSITIVE [None]
  - GASTROENTERITIS [None]
  - HAEMOLYTIC ANAEMIA [None]
  - HEART RATE INCREASED [None]
  - JAUNDICE [None]
  - KIDNEY ENLARGEMENT [None]
  - MUMPS ANTIBODY TEST POSITIVE [None]
  - MYCOPLASMA SEROLOGY POSITIVE [None]
  - OTITIS MEDIA [None]
  - OXYGEN SATURATION DECREASED [None]
  - PERITONEAL DIALYSIS [None]
  - PLATELET COUNT INCREASED [None]
  - RENAL FAILURE ACUTE [None]
  - RENAL TUBULAR NECROSIS [None]
  - WHITE BLOOD CELL COUNT INCREASED [None]
